FAERS Safety Report 15246515 (Version 1)
Quarter: 2018Q3

REPORT INFORMATION
  Report Type: Spontaneous
  Country: US (occurrence: US)
  Receive Date: 20180806
  Receipt Date: 20180806
  Transmission Date: 20181010
  Serious: No
  Sender: FDA-Public Use
  Company Number: US-SA-2018SA205790

PATIENT
  Age: 72 Year
  Sex: Female
  Weight: 43.09 kg

DRUGS (1)
  1. NASACORT ALLERGY 24HR [Suspect]
     Active Substance: TRIAMCINOLONE ACETONIDE
     Dosage: EACH NOSTRIL QD,2 SPRAYS
     Dates: start: 20180723

REACTIONS (1)
  - Rhinitis [Recovering/Resolving]

NARRATIVE: CASE EVENT DATE: 20180724
